FAERS Safety Report 6752260-X (Version None)
Quarter: 2010Q2

REPORT INFORMATION
  Report Type: 
  Country: None (occurrence: None)
  Receive Date: 20100602
  Receipt Date: 20100518
  Transmission Date: 20101027
  Serious: Yes (Hospitalization)
  Sender: FDA-Public Use
  Company Number: GB-PFIZER INC-2010059756

PATIENT
  Age: 58 Year
  Sex: Male

DRUGS (6)
  1. ATORVASTATIN CALCIUM [Suspect]
     Dosage: 40 MG, 1X/DAY
  2. CIPROFLOXACIN [Interacting]
     Indication: WOUND INFECTION
     Dosage: 500 MG, 2X/DAY
     Route: 048
  3. FUCIDINE CAP [Interacting]
     Indication: WOUND INFECTION
     Dosage: 500 MG, 3X/DAY
  4. ACETYLSALICYLIC ACID [Concomitant]
     Dosage: 75 MG, 1X/DAY
  5. BISOPROLOL [Concomitant]
     Dosage: 5 MG, 1X/DAY
  6. FRUSEMIDE [Concomitant]
     Dosage: 20 MG, 1X/DAY

REACTIONS (2)
  - DRUG INTERACTION [None]
  - RHABDOMYOLYSIS [None]
